FAERS Safety Report 5980019-X (Version None)
Quarter: 2008Q4

REPORT INFORMATION
  Report Type: 
  Country: None (occurrence: None)
  Receive Date: 20081205
  Receipt Date: 20081124
  Transmission Date: 20090506
  Serious: Yes (Other)
  Sender: FDA-Public Use
  Company Number: US-PURDUE-DEU_2008_0004822

PATIENT
  Age: 68 Year
  Sex: Female
  Weight: 59 kg

DRUGS (5)
  1. HYDROMORPHONE HCL [Suspect]
     Indication: BACK PAIN
     Dosage: UNK, SEE TEXT
     Route: 008
  2. FENTANYL-100 [Concomitant]
  3. ACETAMINOPHEN AND HYDROCODONE BITARTRATE [Concomitant]
  4. DULOXETINE [Concomitant]
  5. PREGABALIN [Concomitant]

REACTIONS (2)
  - LOCALISED OEDEMA [None]
  - OEDEMA PERIPHERAL [None]
